FAERS Safety Report 7354633-3 (Version None)
Quarter: 2011Q1

REPORT INFORMATION
  Report Type: 
  Country: None (occurrence: None)
  Receive Date: 20110316
  Receipt Date: 20110310
  Transmission Date: 20110831
  Serious: Yes (Hospitalization, Other)
  Sender: FDA-Public Use
  Company Number: US-PFIZER INC-2011003902

PATIENT
  Sex: Female

DRUGS (3)
  1. CHANTIX [Suspect]
     Indication: SMOKING CESSATION THERAPY
     Dosage: 0.5 MG + 1 MG, UNK
     Dates: start: 20090101, end: 20090201
  2. GEODON [Concomitant]
     Indication: SCHIZOPHRENIA
     Dosage: UNK
     Dates: start: 20030101, end: 20090901
  3. LAMICTAL [Concomitant]
     Indication: MOOD SWINGS
     Dosage: UNK
     Dates: start: 20030101, end: 20090901

REACTIONS (3)
  - ANXIETY [None]
  - MENTAL DISORDER [None]
  - DEPRESSION [None]
